FAERS Safety Report 8267076-5 (Version None)
Quarter: 2012Q2

REPORT INFORMATION
  Report Type: 
  Country: None (occurrence: None)
  Receive Date: 20120409
  Receipt Date: 20120327
  Transmission Date: 20120825
  Serious: Yes (Other)
  Sender: FDA-Public Use
  Company Number: US-CELGENEUS-163-21880-12033265

PATIENT

DRUGS (1)
  1. REVLIMID [Suspect]
     Indication: HODGKIN'S DISEASE REFRACTORY
     Dosage: 25 MILLIGRAM
     Route: 048

REACTIONS (8)
  - BLOOD PHOSPHORUS DECREASED [None]
  - BLOOD SODIUM DECREASED [None]
  - PERIPHERAL SENSORY NEUROPATHY [None]
  - DEHYDRATION [None]
  - BLOOD ALBUMIN DECREASED [None]
  - BLOOD CALCIUM DECREASED [None]
  - BLOOD POTASSIUM DECREASED [None]
  - DYSPNOEA [None]
